FAERS Safety Report 17461708 (Version 1)
Quarter: 2020Q1

REPORT INFORMATION
  Report Type: Spontaneous
  Country: US (occurrence: US)
  Receive Date: 20200226
  Receipt Date: 20200226
  Transmission Date: 20200409
  Serious: No
  Sender: FDA-Public Use
  Company Number: None

PATIENT
  Age: 79 Year

DRUGS (1)
  1. AMPICILLIN [Suspect]
     Active Substance: AMPICILLIN
     Route: 042

REACTIONS (3)
  - Rash [None]
  - Pyrexia [None]
  - Adverse drug reaction [None]

NARRATIVE: CASE EVENT DATE: 20200221
